FAERS Safety Report 12710534 (Version 2)
Quarter: 2016Q3

REPORT INFORMATION
  Report Type: Spontaneous
  Country: US (occurrence: US)
  Receive Date: 20160902
  Receipt Date: 20160912
  Transmission Date: 20161109
  Serious: No
  Sender: FDA-Public Use
  Company Number: US-ELI_LILLY_AND_COMPANY-US201608012473

PATIENT
  Age: 81 Year
  Sex: Male

DRUGS (19)
  1. CIALIS [Suspect]
     Active Substance: TADALAFIL
     Dosage: 5 MG, QD
     Route: 065
     Dates: end: 201601
  2. SULFAMETHIZOLE W/TRIMETHOPRIM [Concomitant]
     Active Substance: SULFAMETHOXAZOLE\TRIMETHOPRIM
     Indication: PROSTATIC DISORDER
     Dosage: UNK
     Dates: start: 201511
  3. PANTOPRAZOLE [Concomitant]
     Active Substance: PANTOPRAZOLE SODIUM
     Indication: GASTROOESOPHAGEAL REFLUX DISEASE
     Dosage: 40 MG, QD
     Route: 065
     Dates: start: 201408
  4. XANAX [Concomitant]
     Active Substance: ALPRAZOLAM
     Indication: ANXIETY
     Dosage: 0.25 MG, UNK
     Route: 065
     Dates: start: 1994
  5. VITAMIN B [Concomitant]
     Active Substance: VITAMIN B
  6. LEVOFLOXACIN. [Concomitant]
     Active Substance: LEVOFLOXACIN
     Dosage: UNK
     Dates: start: 201212
  7. OXYCODONE/APAP                     /00867901/ [Concomitant]
     Active Substance: ACETAMINOPHEN\OXYCODONE HYDROCHLORIDE
     Indication: PROSTATE CRYOABLATION
     Dosage: 5MG-325NG 1/4HR
     Dates: start: 201205
  8. CIALIS [Suspect]
     Active Substance: TADALAFIL
     Dosage: 7.5 MG, QD
     Route: 065
     Dates: start: 20160316
  9. FLOMAX [Concomitant]
     Active Substance: TAMSULOSIN HYDROCHLORIDE
     Dosage: UNK
     Dates: start: 201310, end: 201311
  10. CIALIS [Suspect]
     Active Substance: TADALAFIL
     Dosage: 5 MG, BID
     Route: 065
     Dates: start: 201601, end: 20160315
  11. CIPROFLOXACIN. [Concomitant]
     Active Substance: CIPROFLOXACIN
     Dosage: UNK
     Dates: start: 201311
  12. METHYLPREDNISOLONE. [Concomitant]
     Active Substance: METHYLPREDNISOLONE
     Indication: COMPUTERISED TOMOGRAM LIVER
     Dosage: 32 MG, EVENING BEFORE AND 2 HR BEFORE
     Dates: start: 201305
  13. BUSPIRONE [Concomitant]
     Active Substance: BUSPIRONE HYDROCHLORIDE
     Indication: ANXIETY
     Dosage: 15 MG, TID
     Dates: start: 199806
  14. CIALIS [Suspect]
     Active Substance: TADALAFIL
     Indication: BENIGN PROSTATIC HYPERPLASIA
     Dosage: 2.5MG THEN 5MG
     Route: 065
     Dates: start: 201107, end: 201310
  15. CREON [Concomitant]
     Active Substance: PANCRELIPASE AMYLASE\PANCRELIPASE LIPASE\PANCRELIPASE PROTEASE
     Indication: DYSPEPSIA
     Dosage: UNK
     Dates: start: 200905
  16. CITRUCEL [Concomitant]
     Active Substance: METHYLCELLULOSE (4000 MPA.S)
     Indication: SUPPLEMENTATION THERAPY
     Dosage: UNK, TID
  17. CALCIUM [Concomitant]
     Active Substance: CALCIUM
     Dosage: UNK, BID
  18. SYNTHROID [Concomitant]
     Active Substance: LEVOTHYROXINE SODIUM
     Indication: THYROID DISORDER
     Dosage: 100 UG, QD
     Dates: start: 199809
  19. MURO 128 [Concomitant]
     Active Substance: SODIUM CHLORIDE
     Indication: CORNEAL OEDEMA
     Dosage: 1 DROP PER EYE
     Route: 065

REACTIONS (13)
  - Dysstasia [Unknown]
  - Intentional product misuse [Unknown]
  - Angiopathy [Recovered/Resolved]
  - Bacterial infection [Unknown]
  - Prescribed overdose [Unknown]
  - Pain [Unknown]
  - Chest discomfort [Unknown]
  - Pain in extremity [Recovered/Resolved]
  - Overdose [Unknown]
  - Prostate infection [Unknown]
  - Chills [Unknown]
  - Viral infection [Unknown]
  - Discomfort [Unknown]

NARRATIVE: CASE EVENT DATE: 201204
